FAERS Safety Report 10467630 (Version 1)
Quarter: 2014Q3

REPORT INFORMATION
  Report Type: Spontaneous
  Country: US (occurrence: US)
  Receive Date: 20140922
  Receipt Date: 20140922
  Transmission Date: 20150326
  Serious: Yes (Hospitalization)
  Sender: FDA-Public Use
  Company Number: US-GLAXOSMITHKLINE-A1089954A

PATIENT
  Sex: Female

DRUGS (1)
  1. ADVAIR HFA [Suspect]
     Active Substance: FLUTICASONE PROPIONATE\SALMETEROL XINAFOATE
     Indication: ASTHMA PROPHYLAXIS
     Route: 065

REACTIONS (4)
  - Drug dose omission [Unknown]
  - Intensive care [Unknown]
  - Unable to afford prescribed medication [Unknown]
  - Asthma [Unknown]

NARRATIVE: CASE EVENT DATE: 2014
